APPROVED DRUG PRODUCT: SODIUM NITROPRUSSIDE
Active Ingredient: SODIUM NITROPRUSSIDE
Strength: 25MG/ML
Dosage Form/Route: INJECTABLE;INJECTION
Application: A210763 | Product #001 | TE Code: AP
Applicant: MYLAN LABORATORIES LTD
Approved: Apr 17, 2018 | RLD: No | RS: No | Type: RX